FAERS Safety Report 14681640 (Version 1)
Quarter: 2018Q1

REPORT INFORMATION
  Report Type: Spontaneous
  Country: SE (occurrence: SE)
  Receive Date: 20180326
  Receipt Date: 20180326
  Transmission Date: 20180509
  Serious: Yes (Life-Threatening)
  Sender: FDA-Public Use
  Company Number: SE-PFIZER INC-2018121239

PATIENT
  Age: 38 Year
  Sex: Female
  Weight: 87 kg

DRUGS (1)
  1. SYNARELA [Suspect]
     Active Substance: NAFARELIN ACETATE
     Indication: ASSISTED FERTILISATION
     Dosage: 400 UG, TWICE A DAY
     Route: 045
     Dates: start: 20180208, end: 20180212

REACTIONS (12)
  - Nasal discomfort [Recovering/Resolving]
  - Dry eye [Recovering/Resolving]
  - Pharyngeal paraesthesia [Recovering/Resolving]
  - Rhinorrhoea [Recovering/Resolving]
  - Dyspnoea [Recovering/Resolving]
  - Rash pruritic [Recovering/Resolving]
  - Hot flush [Recovering/Resolving]
  - Mood swings [Recovering/Resolving]
  - Arthralgia [Recovering/Resolving]
  - Pharyngeal oedema [Recovering/Resolving]
  - Hypersensitivity [Recovering/Resolving]
  - Dysphagia [Recovering/Resolving]

NARRATIVE: CASE EVENT DATE: 20180208
